FAERS Safety Report 23629821 (Version 1)
Quarter: 2024Q1

REPORT INFORMATION
  Report Type: Spontaneous
  Country: GB (occurrence: GB)
  Receive Date: 20240314
  Receipt Date: 20240314
  Transmission Date: 20240410
  Serious: Yes (Congenital Anomaly)
  Sender: FDA-Public Use
  Company Number: None

PATIENT
  Age: 1 Hour
  Sex: Male

DRUGS (4)
  1. LITHIUM [Suspect]
     Active Substance: LITHIUM
     Dosage: 400MG OD ; ;
     Route: 064
  2. PROPRANOLOL [Suspect]
     Active Substance: PROPRANOLOL HYDROCHLORIDE
     Dosage: 40MG TWICE DAILY ; ;
     Route: 064
  3. QUETIAPINE [Suspect]
     Active Substance: QUETIAPINE
     Dosage: 200MG ONCE DAILY; ;
     Route: 064
  4. VENLAFAXINE [Suspect]
     Active Substance: VENLAFAXINE HYDROCHLORIDE
     Dosage: 275MG ONCE DAILY ; ;
     Route: 064

REACTIONS (5)
  - Facial paralysis [Not Recovered/Not Resolved]
  - Developmental delay [Not Recovered/Not Resolved]
  - Amblyopia [Not Recovered/Not Resolved]
  - Foetal exposure during pregnancy [Not Recovered/Not Resolved]
  - Drug interaction [Not Recovered/Not Resolved]

NARRATIVE: CASE EVENT DATE: 20181226
